FAERS Safety Report 15271081 (Version 2)
Quarter: 2018Q3

REPORT INFORMATION
  Report Type: Report from Study
  Country: FR (occurrence: FR)
  Receive Date: 20180813
  Receipt Date: 20180910
  Transmission Date: 20181010
  Serious: Yes (Death, Hospitalization)
  Sender: FDA-Public Use
  Company Number: FR-PFIZER INC-2017487462

PATIENT
  Age: 61 Year
  Sex: Female
  Weight: 76 kg

DRUGS (10)
  1. LERCAPRESS /07931001/ [Concomitant]
     Active Substance: ENALAPRIL MALEATE\LERCANIDIPINE HYDROCHLORIDE
     Indication: HYPERTENSION
     Dosage: UNK
  2. FOLIC ACID. [Concomitant]
     Active Substance: FOLIC ACID
  3. SOLU?MEDROL [Concomitant]
     Active Substance: METHYLPREDNISOLONE SODIUM SUCCINATE
     Indication: RESPIRATORY DISTRESS
     Dosage: UNK
     Dates: start: 201706
  4. MOPRAL /00661201/ [Concomitant]
     Active Substance: OMEPRAZOLE SODIUM
     Indication: PROPHYLAXIS
     Dosage: UNK
     Dates: start: 201706
  5. IXPRIM [Concomitant]
     Active Substance: ACETAMINOPHEN\TRAMADOL HYDROCHLORIDE
     Indication: PAIN
  6. MIDAZOLAM [Concomitant]
     Active Substance: MIDAZOLAM HYDROCHLORIDE
     Indication: RESPIRATORY DISTRESS
     Dosage: UNK
     Dates: start: 201706
  7. LASILIX /00032601/ [Concomitant]
     Active Substance: FUROSEMIDE
     Indication: RESPIRATORY DISTRESS
     Dosage: UNK
     Dates: start: 201706
  8. DOLIPRANE [Concomitant]
     Active Substance: ACETAMINOPHEN
     Indication: PAIN
  9. VERSATIS [Concomitant]
     Active Substance: LIDOCAINE
     Indication: PAIN
     Dosage: UNK
     Dates: start: 201705
  10. AXITINIB [Suspect]
     Active Substance: AXITINIB
     Indication: METASTATIC RENAL CELL CARCINOMA
     Dosage: 50 MG, DAILY
     Dates: start: 20160913, end: 20170104

REACTIONS (3)
  - Back pain [Not Recovered/Not Resolved]
  - Death [Fatal]
  - Pain [Recovered/Resolved]

NARRATIVE: CASE EVENT DATE: 20161025
